FAERS Safety Report 20838367 (Version 2)
Quarter: 2022Q2

REPORT INFORMATION
  Report Type: 
  Country: IT (occurrence: IT)
  Receive Date: 20220517
  Receipt Date: 20220518
  Transmission Date: 20220721
  Serious: Yes (Hospitalization, Other)
  Sender: FDA-Public Use
  Company Number: None

PATIENT
  Age: 80 Year
  Sex: Female

DRUGS (2)
  1. PIPERACILLIN AND TAZOBACTAM [Suspect]
     Active Substance: PIPERACILLIN SODIUM\TAZOBACTAM SODIUM
     Indication: Antibiotic prophylaxis
     Route: 042
  2. ACETAMINOPHEN [Concomitant]
     Active Substance: ACETAMINOPHEN
     Indication: Abdominal pain
     Route: 042

REACTIONS (5)
  - Cardiac arrest [Recovered/Resolved]
  - Atrial fibrillation [None]
  - Kounis syndrome [Recovered/Resolved]
  - Pulseless electrical activity [Recovered/Resolved]
  - Atrioventricular block complete [Recovered/Resolved]
